FAERS Safety Report 4328445-9 (Version None)
Quarter: 2004Q1

REPORT INFORMATION
  Report Type: 
  Country: None (occurrence: None)
  Receive Date: 20040331
  Receipt Date: 20040226
  Transmission Date: 20041129
  Serious: Yes (Other)
  Sender: FDA-Public Use
  Company Number: PHEH2004US02400

PATIENT
  Age: 38 Year
  Sex: Male
  Weight: 91 kg

DRUGS (2)
  1. DIOVAN [Suspect]
     Dosage: UNK/UNK
     Route: 048
  2. ZOLOFT [Concomitant]
     Dosage: UNK, DAILY
     Route: 048
     Dates: start: 20040101

REACTIONS (2)
  - NASAL TURBINATE ABNORMALITY [None]
  - POST PROCEDURAL HAEMORRHAGE [None]
